FAERS Safety Report 7328413-9 (Version None)
Quarter: 2011Q1

REPORT INFORMATION
  Report Type: 
  Country: None (occurrence: None)
  Receive Date: 20110224
  Receipt Date: 20110224
  Transmission Date: 20110831
  Serious: Yes (Hospitalization)
  Sender: FDA-Public Use
  Company Number: None

PATIENT
  Age: 85 Year
  Sex: Male
  Weight: 65 kg

DRUGS (1)
  1. SIMVASTATIN [Suspect]
     Indication: HYPERLIPIDAEMIA
     Dosage: 1 TAB AT BEDTIME PO
     Route: 048
     Dates: start: 20040715, end: 20110118

REACTIONS (3)
  - HEPATIC ENZYME INCREASED [None]
  - MYALGIA [None]
  - RENAL FAILURE ACUTE [None]
